FAERS Safety Report 12927604 (Version 1)
Quarter: 2016Q4

REPORT INFORMATION
  Report Type: Spontaneous
  Country: US (occurrence: US)
  Receive Date: 20161109
  Receipt Date: 20161109
  Transmission Date: 20170207
  Serious: No
  Sender: FDA-Public Use
  Company Number: None

PATIENT
  Age: 26 Year
  Sex: Female
  Weight: 55 kg

DRUGS (1)
  1. THYROGEN [Suspect]
     Active Substance: THYROTROPIN ALFA
     Dates: start: 20161108, end: 20161108

REACTIONS (2)
  - Product packaging confusion [None]
  - Accidental overdose [None]

NARRATIVE: CASE EVENT DATE: 20161108
